FAERS Safety Report 20408286 (Version 1)
Quarter: 2022Q1

REPORT INFORMATION
  Report Type: Spontaneous
  Country: US (occurrence: US)
  Receive Date: 20220201
  Receipt Date: 20220201
  Transmission Date: 20220424
  Serious: No
  Sender: FDA-Public Use
  Company Number: US-ORGANON-O2201USA002141

PATIENT
  Sex: Male

DRUGS (2)
  1. PREGNYL [Suspect]
     Active Substance: CHORIOGONADOTROPIN ALFA
     Dosage: 10000 UNITS, 500 UNITS IN THE MUSCLE 3 TIMES WEEKLY AS DIRECTED
     Route: 030
     Dates: start: 20190815
  2. WATER FOR INJECTION [Suspect]
     Active Substance: WATER
     Dosage: UNK

REACTIONS (1)
  - Product prescribing error [Unknown]
